FAERS Safety Report 11500531 (Version 3)
Quarter: 2015Q4

REPORT INFORMATION
  Report Type: Spontaneous
  Country: US (occurrence: US)
  Receive Date: 20150914
  Receipt Date: 20151002
  Transmission Date: 20160304
  Serious: No
  Sender: FDA-Public Use
  Company Number: US-PFIZER INC-2015298195

PATIENT
  Age: 35 Year
  Sex: Male

DRUGS (4)
  1. SUBOXONE [Concomitant]
     Active Substance: BUPRENORPHINE HYDROCHLORIDE\NALOXONE HYDROCHLORIDE
     Indication: DEPENDENCE
     Dosage: 1.75 UNK, 3X/DAY (FILM)
  2. LYRICA [Suspect]
     Active Substance: PREGABALIN
     Indication: RADICULOPATHY
     Dosage: 100 MG, 3X/DAY
     Route: 048
     Dates: start: 20150417
  3. CYCLOBENZAPRINE [Concomitant]
     Active Substance: CYCLOBENZAPRINE
     Indication: PAIN
     Dosage: 10 UNK, 3X/DAY (PRN)
     Dates: start: 201412
  4. LYRICA [Suspect]
     Active Substance: PREGABALIN
     Indication: PAIN

REACTIONS (1)
  - Gynaecomastia [Recovered/Resolved]

NARRATIVE: CASE EVENT DATE: 201505
